FAERS Safety Report 20840761 (Version 1)
Quarter: 2022Q2

REPORT INFORMATION
  Report Type: Spontaneous
  Country: US (occurrence: US)
  Receive Date: 20220517
  Receipt Date: 20220517
  Transmission Date: 20220721
  Serious: No
  Sender: FDA-Public Use
  Company Number: US-PFIZER INC-2020218945

PATIENT
  Age: 78 Year
  Sex: Female
  Weight: 71.21 kg

DRUGS (1)
  1. LEVOTHYROXINE SODIUM [Suspect]
     Active Substance: LEVOTHYROXINE SODIUM
     Indication: Autoimmune thyroiditis
     Dosage: 88 UG, 1X/DAY (1 A DAY)
     Dates: start: 2014

REACTIONS (1)
  - Fatigue [Unknown]
